FAERS Safety Report 22836791 (Version 2)
Quarter: 2023Q4

REPORT INFORMATION
  Report Type: Spontaneous
  Country: US (occurrence: None)
  Receive Date: 20230818
  Receipt Date: 20231010
  Transmission Date: 20240110
  Serious: No
  Sender: FDA-Public Use
  Company Number: 2023A183661

PATIENT
  Sex: Female

DRUGS (1)
  1. BREZTRI [Suspect]
     Active Substance: BUDESONIDE\FORMOTEROL\GLYCOPYRROLATE
     Dosage: 160/9/4.8 MCG, 120 INHALATIONS
     Route: 055

REACTIONS (3)
  - Illness [Not Recovered/Not Resolved]
  - Incorrect dose administered [Unknown]
  - Device delivery system issue [Unknown]
